FAERS Safety Report 8126342-4 (Version None)
Quarter: 2012Q1

REPORT INFORMATION
  Report Type: 
  Country: None (occurrence: None)
  Receive Date: 20120209
  Receipt Date: 20120131
  Transmission Date: 20120608
  Serious: Yes (Other)
  Sender: FDA-Public Use
  Company Number: US-ASTRAZENECA-2012SE00038

PATIENT
  Age: 51 Year
  Sex: Female

DRUGS (1)
  1. NEXIUM [Suspect]
     Route: 048

REACTIONS (9)
  - ROAD TRAFFIC ACCIDENT [None]
  - PAIN IN EXTREMITY [None]
  - BACK DISORDER [None]
  - NECK INJURY [None]
  - BACK PAIN [None]
  - NERVE INJURY [None]
  - MIGRAINE [None]
  - DEPRESSION [None]
  - SPINAL CORD INJURY [None]
